FAERS Safety Report 4825004-6 (Version None)
Quarter: 2005Q4

REPORT INFORMATION
  Report Type: 
  Country: None (occurrence: None)
  Receive Date: 20051108
  Receipt Date: 20051026
  Transmission Date: 20060501
  Serious: Yes (Other)
  Sender: FDA-Public Use
  Company Number: 218992

PATIENT
  Age: 56 Year
  Sex: Male

DRUGS (3)
  1. MABTHERA(RITUXIMAB) CONC FOR SOLUTION FOR INFUSION [Suspect]
     Indication: CASTLEMAN'S DISEASE
     Dosage: 375 MG/M2, SINGLE, UNK; 375 MG/M2, 1/WEEK, UNK
     Route: 065
  2. ETOPOSIDE [Concomitant]
  3. ANTIRETROVIRALS (ANTIRETROVIRALS) [Concomitant]

REACTIONS (11)
  - C-REACTIVE PROTEIN INCREASED [None]
  - CASTLEMAN'S DISEASE [None]
  - CONDITION AGGRAVATED [None]
  - DRUG INEFFECTIVE [None]
  - DYSPNOEA [None]
  - HEPATOSPLENOMEGALY [None]
  - HYPERHIDROSIS [None]
  - KAPOSI'S SARCOMA [None]
  - MALAISE [None]
  - PYREXIA [None]
  - RESPIRATORY DISORDER [None]
